FAERS Safety Report 5664072-9 (Version None)
Quarter: 2008Q1

REPORT INFORMATION
  Report Type: 
  Country: None (occurrence: None)
  Receive Date: 20080314
  Receipt Date: 20080229
  Transmission Date: 20080703
  Serious: Yes (Death)
  Sender: FDA-Public Use
  Company Number: US-ELI_LILLY_AND_COMPANY-US200802007007

PATIENT
  Sex: Female

DRUGS (2)
  1. FORTEO [Suspect]
  2. COUMADIN [Concomitant]
     Indication: DEEP VEIN THROMBOSIS

REACTIONS (3)
  - CARDIO-RESPIRATORY ARREST [None]
  - GASTROINTESTINAL HAEMORRHAGE [None]
  - RENAL FAILURE [None]
